FAERS Safety Report 12315235 (Version 3)
Quarter: 2016Q2

REPORT INFORMATION
  Report Type: Spontaneous
  Country: CN (occurrence: CN)
  Receive Date: 20160428
  Receipt Date: 20160504
  Transmission Date: 20160815
  Serious: Yes (Life-Threatening, Hospitalization, Other)
  Sender: FDA-Public Use
  Company Number: CN-BAYER-2016-078553

PATIENT
  Age: 61 Year
  Sex: Female

DRUGS (1)
  1. ULTRAVIST [Suspect]
     Active Substance: IOPROMIDE
     Dosage: 95 ML, ONCE
     Dates: start: 20160416

REACTIONS (3)
  - Brain death [Not Recovered/Not Resolved]
  - Shock [None]
  - Cardiac arrest [None]

NARRATIVE: CASE EVENT DATE: 201604
